FAERS Safety Report 11097928 (Version 1)
Quarter: 2015Q2

REPORT INFORMATION
  Report Type: Spontaneous
  Country: US (occurrence: US)
  Receive Date: 20150507
  Receipt Date: 20150507
  Transmission Date: 20150821
  Serious: Yes (Hospitalization)
  Sender: FDA-Public Use
  Company Number: US-ALLERGAN-1508436US

PATIENT
  Age: 56 Year
  Sex: Female

DRUGS (2)
  1. LYRICA [Concomitant]
     Active Substance: PREGABALIN
     Indication: MIGRAINE
     Dosage: 100 MG, TID
     Dates: start: 2008
  2. BOTOX [Suspect]
     Active Substance: ONABOTULINUMTOXINA
     Indication: MIGRAINE
     Dosage: UNK, SINGLE (EVERY 3 MONTHS)
     Route: 030
     Dates: start: 2008, end: 2008

REACTIONS (4)
  - Malaise [Recovered/Resolved]
  - Cough [Recovered/Resolved]
  - Pulmonary congestion [Recovered/Resolved]
  - Viral infection [Recovered/Resolved]

NARRATIVE: CASE EVENT DATE: 20141224
